FAERS Safety Report 8530513-2 (Version None)
Quarter: 2012Q3

REPORT INFORMATION
  Report Type: 
  Country: None (occurrence: None)
  Receive Date: 20120723
  Receipt Date: 20120716
  Transmission Date: 20120928
  Serious: Yes (Life-Threatening, Hospitalization, Other)
  Sender: FDA-Public Use
  Company Number: US-PFIZER INC-2012076177

PATIENT
  Sex: Male
  Weight: 92.971 kg

DRUGS (2)
  1. XANAX XR [Suspect]
     Indication: ANXIETY
     Dosage: 0.5 MG, 1X/DAY
     Route: 048
     Dates: start: 20040101
  2. XANAX XR [Suspect]
     Indication: HYPERTENSION

REACTIONS (9)
  - GASTRIC DISORDER [None]
  - RENAL IMPAIRMENT [None]
  - DYSPEPSIA [None]
  - PAIN [None]
  - MALAISE [None]
  - DRUG INTOLERANCE [None]
  - BLOOD POTASSIUM DECREASED [None]
  - BACK PAIN [None]
  - OFF LABEL USE [None]
